FAERS Safety Report 7455911-X (Version None)
Quarter: 2011Q2

REPORT INFORMATION
  Report Type: 
  Country: None (occurrence: None)
  Receive Date: 20110503
  Receipt Date: 20081105
  Transmission Date: 20111010
  Serious: Yes (Hospitalization)
  Sender: FDA-Public Use
  Company Number: Z0000581A

PATIENT
  Sex: Female
  Weight: 58 kg

DRUGS (2)
  1. LAPATINIB [Suspect]
     Route: 048
     Dates: start: 20081003, end: 20081031
  2. BLINDED TRIAL MEDICATION [Suspect]
     Route: 048
     Dates: start: 20081003, end: 20081031

REACTIONS (3)
  - DIARRHOEA [None]
  - VOMITING [None]
  - HEADACHE [None]
